FAERS Safety Report 4563270-5 (Version None)
Quarter: 2005Q1

REPORT INFORMATION
  Report Type: 
  Country: None (occurrence: None)
  Receive Date: 20050121
  Receipt Date: 20050118
  Transmission Date: 20050727
  Serious: Yes (Hospitalization, Other)
  Sender: FDA-Public Use
  Company Number: GBWYE317405JAN05

PATIENT
  Age: 7 Year
  Sex: Female

DRUGS (1)
  1. ADVIL [Suspect]
     Indication: PYREXIA
     Dosage: 6 MG/KG 1X PER 1 TOT

REACTIONS (3)
  - BLOOD PRESSURE DIASTOLIC DECREASED [None]
  - HYPOTHERMIA [None]
  - PLATELET COUNT DECREASED [None]
